FAERS Safety Report 4873325-3 (Version None)
Quarter: 2006Q1

REPORT INFORMATION
  Report Type: 
  Country: None (occurrence: None)
  Receive Date: 20060105
  Receipt Date: 20050822
  Transmission Date: 20060701
  Serious: Yes (Death)
  Sender: FDA-Public Use
  Company Number: AT-BRISTOL-MYERS SQUIBB COMPANY-13085857

PATIENT
  Age: 78 Year
  Sex: Female
  Weight: 90 kg

DRUGS (1)
  1. MAXIPIME [Suspect]
     Indication: SEPSIS
     Dates: start: 20041223, end: 20041224

REACTIONS (1)
  - MULTI-ORGAN FAILURE [None]
